FAERS Safety Report 12720705 (Version 1)
Quarter: 2016Q3

REPORT INFORMATION
  Report Type: Spontaneous
  Country: BR (occurrence: BR)
  Receive Date: 20160907
  Receipt Date: 20160907
  Transmission Date: 20161109
  Serious: Yes (Other)
  Sender: FDA-Public Use
  Company Number: BR-PFIZER INC-2016413011

PATIENT
  Age: 83 Year
  Sex: Female

DRUGS (6)
  1. GLIFAGE 500 [Concomitant]
     Indication: DIABETES MELLITUS
     Dosage: UNK, 1X/DAY
     Route: 048
  2. FRONTAL [Suspect]
     Active Substance: ALPRAZOLAM
     Indication: INSOMNIA
     Dosage: 0.5 MG, 1X/DAY
     Route: 048
     Dates: start: 2015
  3. LOVATEX [Concomitant]
     Indication: BLOOD PRESSURE ABNORMAL
     Dosage: UNK, 1X/DAY
  4. CALTRATE /00944201/ [Concomitant]
     Indication: BLOOD CALCIUM
  5. ADDERA D3 [Concomitant]
     Active Substance: CHOLECALCIFEROL
     Indication: VITAMIN D DEFICIENCY
     Dosage: UNK, 1X/DAY
     Route: 048
     Dates: start: 2015
  6. CALTRATE /00944201/ [Concomitant]
     Indication: VITAMIN C
     Dosage: UNK, 1X/DAY
     Route: 048

REACTIONS (1)
  - Spinal column injury [Unknown]
